FAERS Safety Report 13676301 (Version 1)
Quarter: 2017Q2

REPORT INFORMATION
  Report Type: Spontaneous
  Country: BR (occurrence: BR)
  Receive Date: 20170622
  Receipt Date: 20170622
  Transmission Date: 20170830
  Serious: Yes (Death, Other)
  Sender: FDA-Public Use
  Company Number: BR-ROCHE-1952726

PATIENT
  Sex: Female

DRUGS (2)
  1. OSELTAMIVIR [Suspect]
     Active Substance: OSELTAMIVIR
     Indication: INTERSTITIAL LUNG DISEASE
     Route: 065
  2. ESBRIET [Suspect]
     Active Substance: PIRFENIDONE
     Indication: INTERSTITIAL LUNG DISEASE
     Route: 065
     Dates: start: 201210

REACTIONS (5)
  - Death [Fatal]
  - Nausea [Unknown]
  - Interstitial lung disease [Unknown]
  - Hypoxia [Unknown]
  - Rash [Unknown]

NARRATIVE: CASE EVENT DATE: 201509
